FAERS Safety Report 6828405-X (Version None)
Quarter: 2010Q3

REPORT INFORMATION
  Report Type: 
  Country: None (occurrence: None)
  Receive Date: 20100709
  Receipt Date: 20070207
  Transmission Date: 20110219
  Serious: No
  Sender: FDA-Public Use
  Company Number: US-PFIZER INC-2007011083

PATIENT
  Sex: Male
  Weight: 88.5 kg

DRUGS (15)
  1. CHANTIX [Suspect]
     Indication: EX-TOBACCO USER
  2. METOPROLOL [Concomitant]
  3. CRESTOR [Concomitant]
  4. NIASPAN [Concomitant]
  5. ZETIA [Concomitant]
  6. CYMBALTA [Concomitant]
  7. DEPAKOTE [Concomitant]
  8. PREVACID [Concomitant]
  9. ALLEGRA [Concomitant]
  10. RANITIDINE [Concomitant]
  11. INDOMETHACIN [Concomitant]
  12. ASPIRIN [Concomitant]
  13. AMBIEN [Concomitant]
  14. FROVA [Concomitant]
  15. ALPRAZOLAM [Concomitant]

REACTIONS (1)
  - DRUG INEFFECTIVE [None]
